FAERS Safety Report 16303113 (Version 1)
Quarter: 2019Q2

REPORT INFORMATION
  Report Type: Spontaneous
  Country: US (occurrence: US)
  Receive Date: 20190513
  Receipt Date: 20190513
  Transmission Date: 20190713
  Serious: No
  Sender: FDA-Public Use
  Company Number: US-TORRENT-00007105

PATIENT
  Age: 60 Year
  Sex: Female
  Weight: 86 kg

DRUGS (1)
  1. CITALOPRAM [Suspect]
     Active Substance: CITALOPRAM HYDROBROMIDE
     Indication: DEPRESSION
     Dosage: ONCE DAILY

REACTIONS (3)
  - Gluten sensitivity [Unknown]
  - Agitation [Recovered/Resolved]
  - Aggression [Recovered/Resolved]
